FAERS Safety Report 6683009-7 (Version None)
Quarter: 2010Q2

REPORT INFORMATION
  Report Type: 
  Country: None (occurrence: None)
  Receive Date: 20100415
  Receipt Date: 20100406
  Transmission Date: 20101027
  Serious: Yes (Hospitalization)
  Sender: FDA-Public Use
  Company Number: JP-ROCHE-696944

PATIENT
  Sex: Female

DRUGS (24)
  1. ACTEMRA [Suspect]
     Indication: RHEUMATOID ARTHRITIS
     Route: 041
     Dates: start: 20090415, end: 20090415
  2. ACTEMRA [Suspect]
     Route: 041
     Dates: start: 20090515, end: 20090515
  3. ACTEMRA [Suspect]
     Route: 041
     Dates: start: 20090612, end: 20090612
  4. ACTEMRA [Suspect]
     Route: 041
     Dates: start: 20090710, end: 20090710
  5. ACTEMRA [Suspect]
     Route: 041
     Dates: start: 20090807, end: 20090807
  6. ACTEMRA [Suspect]
     Route: 041
     Dates: start: 20090904
  7. ACTEMRA [Suspect]
     Route: 041
     Dates: start: 20100315
  8. PREDNISOLONE [Concomitant]
     Dosage: DOSE FORM: PERORAL AGENT
     Route: 048
     Dates: start: 20090515
  9. PREDNISOLONE [Concomitant]
     Dosage: DOSE FORM: PERORAL AGENT
     Route: 048
     Dates: start: 20090516, end: 20090710
  10. PREDNISOLONE [Concomitant]
     Dosage: DOSE FORM: PERORAL AGENT
     Route: 048
     Dates: start: 20090711, end: 20090807
  11. PREDNISOLONE [Concomitant]
     Dosage: DOSE FORM: PERORAL AGENT
     Route: 048
     Dates: start: 20090808
  12. RHEUMATREX [Concomitant]
     Route: 048
  13. RHEUMATREX [Concomitant]
     Route: 048
  14. RIMATIL [Concomitant]
     Route: 048
  15. ALENDRONATE SODIUM [Concomitant]
     Route: 048
  16. ONEALFA [Concomitant]
     Dosage: DOSE FORM: PERORAL AGENT
     Route: 048
  17. PARIET [Concomitant]
     Route: 048
  18. LOXONIN [Concomitant]
     Route: 048
  19. SELBEX [Concomitant]
     Dosage: DOSE FORM: PERORAL AGENT
     Route: 048
  20. GLUCOBAY [Concomitant]
     Route: 048
  21. FOLIC ACID [Concomitant]
     Dosage: DOSE FORM: PERORAL AGENT
     Route: 048
  22. LENDORMIN [Concomitant]
     Route: 048
  23. PREDONINE [Concomitant]
     Route: 042
     Dates: start: 20090306, end: 20090306
  24. PREDONINE [Concomitant]
     Route: 042
     Dates: start: 20090327, end: 20090327

REACTIONS (3)
  - ILEUS [None]
  - PRURITUS [None]
  - RASH [None]
